FAERS Safety Report 9081509 (Version 1)
Quarter: 2013Q1

REPORT INFORMATION
  Report Type: Report from Study
  Country: US (occurrence: US)
  Receive Date: 20130130
  Receipt Date: 20130130
  Transmission Date: 20140127
  Serious: No
  Sender: FDA-Public Use
  Company Number: US-ABBOTT-12P-163-0961940-00

PATIENT
  Age: 82 Year
  Sex: Female

DRUGS (13)
  1. HUMIRA 40 MG/0.8 ML PEN [Suspect]
     Indication: RHEUMATOID ARTHRITIS
  2. METHOTREXATE [Concomitant]
     Indication: RHEUMATOID ARTHRITIS
     Dosage: 2.5MG - 3 PILLS WEEKLY
     Route: 048
  3. TRIAMTERENE/HCTZ [Concomitant]
     Indication: HYPERTENSION
     Dosage: 37.5/25MG DAILY
  4. SYNTHROID [Concomitant]
     Indication: HYPOTHYROIDISM
     Dosage: 0.05MG DAILY
     Route: 048
  5. FOLIC ACID [Concomitant]
     Indication: VITAMIN SUPPLEMENTATION
  6. PRAVASTATIN [Concomitant]
     Indication: BLOOD CHOLESTEROL
     Dosage: 10MG DAILY
     Route: 048
  7. DILTIAZEM [Concomitant]
     Indication: HYPERTENSION
     Dosage: 240/24MG CAPSULE TWICE DAILY
     Route: 048
  8. MELATONIN [Concomitant]
     Indication: INSOMNIA
     Route: 048
  9. HYDROCODONE/APAP [Concomitant]
     Indication: PRODUCT USED FOR UNKNOWN INDICATION
     Dosage: 7.5/500MG - 1 TABLET EVERY 6 HOURS AS NEEDED
     Route: 048
  10. ADVAIR [Concomitant]
     Indication: CHRONIC OBSTRUCTIVE PULMONARY DISEASE
     Dosage: 250/50 DISKUS 1 PUFF TWICE DAILY
     Route: 048
  11. ADVAIR [Concomitant]
     Indication: BRONCHITIS
  12. ADVAIR [Concomitant]
     Indication: ASTHMA
  13. MAXAIR [Concomitant]
     Indication: INHALATION THERAPY

REACTIONS (1)
  - Injection site haemorrhage [Recovered/Resolved]
